FAERS Safety Report 5408990-5 (Version None)
Quarter: 2007Q3

REPORT INFORMATION
  Report Type: 
  Country: None (occurrence: None)
  Receive Date: 20070806
  Receipt Date: 20070724
  Transmission Date: 20080115
  Serious: Yes (Other)
  Sender: FDA-Public Use
  Company Number: 26810

PATIENT
  Age: 65 Year
  Sex: Female

DRUGS (11)
  1. NIASPAN [Suspect]
     Dosage: 500 MG QHS PO
     Route: 048
     Dates: start: 20070411, end: 20070512
  2. TRICOR [Concomitant]
  3. CYMBALTA [Concomitant]
  4. ALLEGRA [Concomitant]
  5. PLAQUENIL [Concomitant]
  6. ZANAFLEX [Concomitant]
  7. OMACOR [Concomitant]
  8. ROZEREM [Concomitant]
  9. TYLENOL ARTHRITIS [Concomitant]
  10. DARVOCET [Concomitant]
  11. FLONASE [Concomitant]

REACTIONS (6)
  - ARTHRITIS [None]
  - BLOOD CHOLESTEROL INCREASED [None]
  - HALLUCINATION [None]
  - HEADACHE [None]
  - NAUSEA [None]
  - SWOLLEN TONGUE [None]
